FAERS Safety Report 16339556 (Version 3)
Quarter: 2019Q4

REPORT INFORMATION
  Report Type: Spontaneous
  Country: US (occurrence: US)
  Receive Date: 20190521
  Receipt Date: 20191004
  Transmission Date: 20200122
  Serious: No
  Sender: FDA-Public Use
  Company Number: US-SA-2019SA138130

PATIENT
  Age: 40 Year
  Sex: Male

DRUGS (13)
  1. FLUTICASONE. [Concomitant]
     Active Substance: FLUTICASONE
  2. METHYLPRED [Concomitant]
     Active Substance: METHYLPREDNISOLONE
  3. PRAVASTATIN. [Concomitant]
     Active Substance: PRAVASTATIN
  4. EZETIMIBE. [Concomitant]
     Active Substance: EZETIMIBE
  5. CEPHALEXIN [CEFALEXIN] [Concomitant]
     Active Substance: CEPHALEXIN
  6. LISINOPRIL. [Concomitant]
     Active Substance: LISINOPRIL
  7. IBUPROFEN. [Concomitant]
     Active Substance: IBUPROFEN
  8. FLECAINIDE [Concomitant]
     Active Substance: FLECAINIDE
  9. DESVENLAFAXINE [DESVENLAFAXINE SUCCINATE] [Concomitant]
  10. DUPIXENT [Suspect]
     Active Substance: DUPILUMAB
     Indication: DERMATITIS ATOPIC
     Dosage: 300 MG, QOW
     Route: 058
     Dates: start: 20170801
  11. FLUOCINONIDE. [Concomitant]
     Active Substance: FLUOCINONIDE
  12. BUPROPION. [Concomitant]
     Active Substance: BUPROPION
  13. VALACYCLOVIR [Concomitant]
     Active Substance: VALACYCLOVIR HYDROCHLORIDE

REACTIONS (1)
  - Dermatitis atopic [Not Recovered/Not Resolved]
